FAERS Safety Report 9112929 (Version 1)
Quarter: 2013Q1

REPORT INFORMATION
  Report Type: Report from Study
  Country: TW (occurrence: TW)
  Receive Date: 20130211
  Receipt Date: 20130211
  Transmission Date: 20140127
  Serious: Yes (Hospitalization)
  Sender: FDA-Public Use
  Company Number: TW-BAXTER-2013BAX005305

PATIENT
  Age: 55 Year
  Sex: Female
  Weight: 38.5 kg

DRUGS (4)
  1. ENDOXAN [Suspect]
     Indication: BREAST CANCER
     Route: 042
     Dates: start: 20121220
  2. ENDOXAN [Suspect]
     Route: 042
     Dates: start: 20130103
  3. ADRIAMYCIN [Suspect]
     Indication: BREAST CANCER
     Route: 042
     Dates: start: 20121220
  4. ADRIAMYCIN [Suspect]
     Route: 042
     Dates: start: 20130103

REACTIONS (1)
  - Pneumonia [Recovered/Resolved]
